FAERS Safety Report 15292965 (Version 1)
Quarter: 2018Q3

REPORT INFORMATION
  Report Type: Spontaneous
  Country: US (occurrence: US)
  Receive Date: 20180806
  Receipt Date: 20180806
  Transmission Date: 20181010
  Serious: Yes (Life-Threatening, Hospitalization, Other)
  Sender: FDA-Public Use
  Company Number: None

PATIENT
  Age: 65 Year
  Sex: Female
  Weight: 86.85 kg

DRUGS (8)
  1. LABETALOL [Concomitant]
     Active Substance: LABETALOL\LABETALOL HYDROCHLORIDE
  2. ANASTRAZOLE [Concomitant]
     Active Substance: ANASTROZOLE
  3. ASPIRIN. [Concomitant]
     Active Substance: ASPIRIN
  4. MELATONIN [Concomitant]
     Active Substance: MELATONIN
  5. VALSARTAN. [Suspect]
     Active Substance: VALSARTAN
     Indication: HYPERTENSION
     Route: 048
     Dates: end: 20180806
  6. MULTIPLE VITAMIN [Concomitant]
     Active Substance: VITAMINS
  7. CALCIUM WITH D3 [Concomitant]
  8. BREAST EXPANDER [Concomitant]

REACTIONS (2)
  - Breast cancer [None]
  - Impaired work ability [None]

NARRATIVE: CASE EVENT DATE: 20171201
